FAERS Safety Report 8926087 (Version 1)
Quarter: 2012Q4

REPORT INFORMATION
  Report Type: 
  Country: KW (occurrence: KW)
  Receive Date: 20121126
  Receipt Date: 20121126
  Transmission Date: 20130627
  Serious: Yes (Other)
  Sender: FDA-Public Use
  Company Number: KW-JNJFOC-20121110252

PATIENT
  Sex: Male

DRUGS (1)
  1. REMICADE [Suspect]
     Indication: HIDRADENITIS
     Route: 042

REACTIONS (3)
  - Lupus-like syndrome [Unknown]
  - Antinuclear antibody increased [Unknown]
  - Rash [Unknown]
